FAERS Safety Report 26121815 (Version 3)
Quarter: 2025Q4

REPORT INFORMATION
  Report Type: Spontaneous
  Country: JP (occurrence: JP)
  Receive Date: 20251204
  Receipt Date: 20251219
  Transmission Date: 20260118
  Serious: Yes (Other)
  Sender: SANOFI AVENTIS
  Company Number: JP-MLMSERVICE-20251121-PI723299-00249-1

PATIENT
  Age: 8 Decade
  Sex: Male
  Weight: 64 kg

DRUGS (9)
  1. OXALIPLATIN [Suspect]
     Active Substance: OXALIPLATIN
     Indication: Colon cancer
     Dosage: UNK
  2. OXALIPLATIN [Suspect]
     Active Substance: OXALIPLATIN
     Indication: Metastases to lymph nodes
     Dosage: 230 MG, QD  (DAY 1; 1 COURSE FOR 21 DAYS; INFUSION TIME OF 2 HOURS)
  3. CAPECITABINE [Concomitant]
     Active Substance: CAPECITABINE
     Indication: Colon cancer
     Dosage: UNK
  4. CAPECITABINE [Concomitant]
     Active Substance: CAPECITABINE
     Indication: Metastases to lymph nodes
     Dosage: 3000 MG, QD (DAY 1-14; 1 COURSE FOR 21 DAYS)
  5. BEVACIZUMAB [Concomitant]
     Active Substance: BEVACIZUMAB
     Indication: Colon cancer
     Dosage: UNK
  6. BEVACIZUMAB [Concomitant]
     Active Substance: BEVACIZUMAB
     Indication: Metastases to lymph nodes
     Dosage: 320 MG, QD (DAY 1; 1 COURSE FOR 21 DAYS)
  7. GRANISETRON [Concomitant]
     Active Substance: GRANISETRON
     Dosage: 3 MG (DAY 1)
  8. SILODOSIN [Concomitant]
     Active Substance: SILODOSIN
     Dosage: 8 MG, QD
     Route: 048
  9. DEXAMETHASONE [Concomitant]
     Active Substance: DEXAMETHASONE
     Dosage: 6.6 MG (DAY 1)

REACTIONS (2)
  - Neuropathy peripheral [Recovered/Resolved]
  - Urinary retention [Recovered/Resolved]
